FAERS Safety Report 10006610 (Version 1)
Quarter: 2014Q1

REPORT INFORMATION
  Report Type: Spontaneous
  Country: GR (occurrence: GR)
  Receive Date: 20140313
  Receipt Date: 20140313
  Transmission Date: 20141002
  Serious: Yes (Other)
  Sender: FDA-Public Use
  Company Number: GR-ABBVIE-14P-066-1209545-00

PATIENT
  Age: 30 Year
  Sex: Female

DRUGS (1)
  1. CLARITHROMYCIN [Suspect]
     Indication: LUNG INFECTION
     Route: 048

REACTIONS (2)
  - Iris atrophy [Recovering/Resolving]
  - Headache [Not Recovered/Not Resolved]
